FAERS Safety Report 6724472-2 (Version None)
Quarter: 2010Q2

REPORT INFORMATION
  Report Type: 
  Country: None (occurrence: None)
  Receive Date: 20100513
  Receipt Date: 20100505
  Transmission Date: 20101027
  Serious: Yes (Other)
  Sender: FDA-Public Use
  Company Number: US-WYE-H14730410

PATIENT
  Sex: Female
  Weight: 65.01 kg

DRUGS (8)
  1. TORISEL [Suspect]
     Indication: METASTATIC RENAL CELL CARCINOMA
     Route: 042
     Dates: start: 20090911
  2. LORAZEPAM [Concomitant]
     Indication: ANXIETY
     Dosage: 1MG AT UNKNOWN FREQUENCY
     Route: 048
  3. LORAZEPAM [Concomitant]
     Indication: NAUSEA
  4. LORAZEPAM [Concomitant]
     Indication: INSOMNIA
  5. LEVOTHYROXINE SODIUM [Concomitant]
     Indication: HYPOTHYROIDISM
     Route: 048
  6. BUPROPION HYDROCHLORIDE [Concomitant]
     Indication: DEPRESSION
     Dosage: UNKNOWN DOSE TWICE DAILY
     Route: 048
  7. DOLASETRON MESYLATE [Concomitant]
     Indication: NAUSEA
     Route: 042
     Dates: start: 20090911
  8. DIPHENHYDRAMINE [Concomitant]
     Route: 042
     Dates: start: 20090911

REACTIONS (2)
  - IMPAIRED HEALING [None]
  - OSTEONECROSIS OF JAW [None]
